FAERS Safety Report 11669992 (Version 4)
Quarter: 2016Q1

REPORT INFORMATION
  Report Type: Spontaneous
  Country: BR (occurrence: BR)
  Receive Date: 20151027
  Receipt Date: 20160119
  Transmission Date: 20160525
  Serious: Yes (Hospitalization, Other)
  Sender: FDA-Public Use
  Company Number: BR-PFIZER INC-2015357663

PATIENT
  Age: 67 Year
  Sex: Male
  Weight: 88 kg

DRUGS (11)
  1. SERETIDE [Interacting]
     Active Substance: FLUTICASONE FUROATE\SALMETEROL XINAFOATE
     Indication: LUNG DISORDER
     Dosage: UNK, 2X/DAY
     Route: 055
     Dates: start: 20150422
  2. AAS 100 [Interacting]
     Active Substance: ASPIRIN
     Indication: CARDIAC DISORDER
     Dosage: 1 TABLET OF 10 MG, DAILY
     Dates: start: 2008
  3. LYRICA [Interacting]
     Active Substance: PREGABALIN
     Indication: SPINAL DISORDER
  4. CHAMPIX [Interacting]
     Active Substance: VARENICLINE TARTRATE
     Dosage: UNK (MAINTENANCE KIT)
     Route: 048
     Dates: start: 201507, end: 201507
  5. RUSOVAS [Interacting]
     Active Substance: ROSUVASTATIN
     Indication: BLOOD CHOLESTEROL INCREASED
     Dosage: 1 TABLET OF 10 MG, DAILY
     Dates: start: 2008
  6. VASTAREL [Interacting]
     Active Substance: TRIMETAZIDINE DIHYDROCHLORIDE
     Indication: BLOOD CHOLESTEROL INCREASED
  7. CHAMPIX [Suspect]
     Active Substance: VARENICLINE TARTRATE
     Indication: SMOKING CESSATION THERAPY
     Dosage: 0.5MG AND 1MG STARTER KIT
     Route: 048
     Dates: start: 201507, end: 201507
  8. LITHIUM. [Interacting]
     Active Substance: LITHIUM
     Indication: MOOD ALTERED
     Dosage: UNK
     Dates: start: 1985, end: 20151019
  9. VASTAREL [Interacting]
     Active Substance: TRIMETAZIDINE DIHYDROCHLORIDE
     Indication: CARDIAC DISORDER
     Dosage: 1 TABLET, DAILY, IN CONTINUOUS USE
     Dates: start: 2012
  10. LITHIUM. [Interacting]
     Active Substance: LITHIUM
     Indication: BIPOLAR DISORDER
  11. LYRICA [Interacting]
     Active Substance: PREGABALIN
     Indication: FIBROMYALGIA
     Dosage: 1 TABLET OF 75 MG IN THE MORNING AND 150 MG IN THE EVENING
     Dates: start: 2014

REACTIONS (13)
  - Feeling abnormal [Unknown]
  - Malaise [Unknown]
  - Loss of consciousness [Unknown]
  - Renal impairment [Unknown]
  - Fear [Unknown]
  - Toxicity to various agents [Unknown]
  - Anxiety [Unknown]
  - Drug interaction [Unknown]
  - Drug intolerance [Unknown]
  - Toxicity to various agents [Unknown]
  - Diarrhoea [Unknown]
  - Asthenia [Unknown]
  - Tremor [Unknown]

NARRATIVE: CASE EVENT DATE: 2015
